FAERS Safety Report 6029057-1 (Version None)
Quarter: 2009Q1

REPORT INFORMATION
  Report Type: 
  Country: None (occurrence: None)
  Receive Date: 20090106
  Receipt Date: 20081229
  Transmission Date: 20090719
  Serious: No
  Sender: FDA-Public Use
  Company Number: JP-ELI_LILLY_AND_COMPANY-JP200810005420

PATIENT
  Age: 83 Year
  Sex: Female

DRUGS (3)
  1. ZYPREXA [Suspect]
     Indication: AFFECT LABILITY
     Dosage: 15 MG, DAILY (1/D)
     Route: 048
     Dates: start: 20080829
  2. ZYPREXA [Suspect]
     Dosage: 5 MG, DAILY (1/D)
     Route: 048
     Dates: start: 20080101, end: 20080101
  3. DEPAKENE [Concomitant]
     Dosage: 800 MG, DAILY (1/D)
     Route: 048
     Dates: start: 20080801

REACTIONS (1)
  - PLATELET COUNT DECREASED [None]
